FAERS Safety Report 15678370 (Version 1)
Quarter: 2018Q4

REPORT INFORMATION
  Report Type: Spontaneous
  Country: BR (occurrence: BR)
  Receive Date: 20181201
  Receipt Date: 20181201
  Transmission Date: 20190205
  Serious: Yes (Hospitalization)
  Sender: FDA-Public Use
  Company Number: BR-UCBSA-2018052171

PATIENT
  Age: 79 Year
  Sex: Male
  Weight: 76 kg

DRUGS (6)
  1. MANTIDAN [Concomitant]
     Active Substance: AMANTADINE HYDROCHLORIDE
     Indication: PARKINSON^S DISEASE
     Dosage: 100 MG, ONCE DAILY (QD)
     Route: 048
     Dates: start: 2015
  2. NEUPRO [Suspect]
     Active Substance: ROTIGOTINE
     Indication: PARKINSON^S DISEASE
     Dosage: 2 MG, ONCE DAILY (QD)
     Route: 062
     Dates: start: 201611
  3. PROLOPA HBS [Concomitant]
     Active Substance: BENSERAZIDE\LEVODOPA
     Indication: PARKINSON^S DISEASE
     Dosage: UNK
     Route: 048
  4. LEVODOPA BENSERAZIDE [Concomitant]
     Active Substance: BENSERAZIDE\LEVODOPA
     Indication: PARKINSON^S DISEASE
     Dosage: UNK
     Route: 048
  5. AZILECT [Concomitant]
     Active Substance: RASAGILINE MESYLATE
     Indication: PARKINSON^S DISEASE
     Dosage: 100 MG, ONCE DAILY (QD)
     Route: 048
     Dates: start: 2015
  6. XELODA [Concomitant]
     Active Substance: CAPECITABINE
     Indication: NEOPLASM MALIGNANT
     Dosage: UNK
     Route: 048
     Dates: start: 20180613, end: 201808

REACTIONS (1)
  - Neoplasm malignant [Recovered/Resolved]

NARRATIVE: CASE EVENT DATE: 201708
